FAERS Safety Report 9397749 (Version 1)
Quarter: 2013Q3

REPORT INFORMATION
  Report Type: Spontaneous
  Country: FR (occurrence: FR)
  Receive Date: 20130712
  Receipt Date: 20130712
  Transmission Date: 20140515
  Serious: Yes (Hospitalization)
  Sender: FDA-Public Use
  Company Number: FR-JNJFOC-20130707088

PATIENT
  Age: 42 Year
  Sex: Male
  Weight: 100 kg

DRUGS (3)
  1. REMICADE [Suspect]
     Indication: ANKYLOSING SPONDYLITIS
     Route: 042
     Dates: start: 2007
  2. CORTANCYL [Concomitant]
     Route: 065
  3. PARACETAMOL [Concomitant]
     Route: 065

REACTIONS (2)
  - Gastroenteritis [Not Recovered/Not Resolved]
  - Lung infection [Unknown]
